FAERS Safety Report 25586888 (Version 1)
Quarter: 2025Q3

REPORT INFORMATION
  Report Type: Spontaneous
  Country: US (occurrence: US)
  Receive Date: 20250721
  Receipt Date: 20250721
  Transmission Date: 20251021
  Serious: No
  Sender: Phathom Pharmaceuticals
  Company Number: US-PHATHOM PHARMACEUTICALS INC.-2025PHT01551

PATIENT
  Age: 70 Year
  Sex: Female

DRUGS (12)
  1. VOQUEZNA [Suspect]
     Active Substance: VONOPRAZAN FUMARATE
     Dosage: 20 MG, 1X/DAY
     Route: 048
     Dates: start: 202505, end: 20250607
  2. CEQUA [Concomitant]
     Active Substance: CYCLOSPORINE
  3. TIZANIDINE [Concomitant]
     Active Substance: TIZANIDINE
  4. PROLIA [Concomitant]
     Active Substance: DENOSUMAB
  5. BENLYSTA [Concomitant]
     Active Substance: BELIMUMAB
  6. BOTOX [Concomitant]
     Active Substance: ONABOTULINUMTOXINA
  7. DULOXETINE [Concomitant]
     Active Substance: DULOXETINE
  8. EZETIMIBE [Concomitant]
     Active Substance: EZETIMIBE
  9. METOPROLOL TARTRATE [Concomitant]
     Active Substance: METOPROLOL TARTRATE
  10. ATORVASTATIN [Concomitant]
     Active Substance: ATORVASTATIN
  11. VALSARTAN [Concomitant]
     Active Substance: VALSARTAN
  12. GABAPENTIN [Concomitant]
     Active Substance: GABAPENTIN

REACTIONS (3)
  - Chest pain [Recovered/Resolved]
  - Migraine [Recovered/Resolved]
  - Hypertension [Recovered/Resolved]

NARRATIVE: CASE EVENT DATE: 20250101
